FAERS Safety Report 4448210-1 (Version None)
Quarter: 2004Q3

REPORT INFORMATION
  Report Type: 
  Country: None (occurrence: None)
  Receive Date: 20040913
  Receipt Date: 20040902
  Transmission Date: 20050211
  Serious: Yes (Disabling, Congenital Anomaly)
  Sender: FDA-Public Use
  Company Number: CH-GLAXOSMITHKLINE-B0344932A

PATIENT
  Age: 6 Month
  Sex: Male

DRUGS (2)
  1. COMBIVIR [Suspect]
     Indication: ACUTE HIV INFECTION
     Dates: start: 20030311, end: 20031219
  2. VIRACEPT [Suspect]
     Indication: ACUTE HIV INFECTION
     Dosage: 1250MG TWICE PER DAY
     Dates: start: 20030311, end: 20031219

REACTIONS (2)
  - DRUG EXPOSURE DURING PREGNANCY [None]
  - TESTICULAR ATROPHY [None]
